FAERS Safety Report 18038230 (Version 1)
Quarter: 2020Q3

REPORT INFORMATION
  Report Type: Spontaneous
  Country: US (occurrence: US)
  Receive Date: 20200717
  Receipt Date: 20200717
  Transmission Date: 20201103
  Serious: Yes (Hospitalization)
  Sender: FDA-Public Use
  Company Number: US-PACIRA-202000293

PATIENT
  Age: 46 Year
  Sex: Female

DRUGS (1)
  1. EXPAREL [Suspect]
     Active Substance: BUPIVACAINE
     Indication: POSTOPERATIVE ANALGESIA
     Dosage: 266 MG DILUTED TO 40 ML WITH NORMAL SALINE

REACTIONS (2)
  - Anaesthetic complication [Recovered/Resolved]
  - Cauda equina syndrome [Recovered/Resolved]
